FAERS Safety Report 13381361 (Version 1)
Quarter: 2017Q1

REPORT INFORMATION
  Report Type: Spontaneous
  Country: US (occurrence: US)
  Receive Date: 20170328
  Receipt Date: 20170328
  Transmission Date: 20170429
  Serious: Yes (Hospitalization)
  Sender: FDA-Public Use
  Company Number: None

PATIENT
  Age: 63 Year
  Sex: Male

DRUGS (12)
  1. VITAMIN B6 [Concomitant]
     Active Substance: PYRIDOXINE HYDROCHLORIDE
  2. VITAMIN C [Concomitant]
     Active Substance: ASCORBIC ACID
  3. NORVASC [Concomitant]
     Active Substance: AMLODIPINE BESYLATE
  4. TAFINLAR [Suspect]
     Active Substance: DABRAFENIB MESYLATE
     Indication: NEOPLASM MALIGNANT
     Route: 048
     Dates: start: 20170307
  5. GLIMEPIRIDE. [Concomitant]
     Active Substance: GLIMEPIRIDE
  6. OPDIVO [Concomitant]
     Active Substance: NIVOLUMAB
  7. CO-Q 10 [Concomitant]
  8. METFORMIN [Concomitant]
     Active Substance: METFORMIN HYDROCHLORIDE
  9. PRAVASTATIN. [Concomitant]
     Active Substance: PRAVASTATIN
  10. MEKINIST [Suspect]
     Active Substance: TRAMETINIB DIMETHYL SULFOXIDE
     Indication: NEOPLASM MALIGNANT
     Route: 048
     Dates: start: 20170307
  11. TOPROL XL [Concomitant]
     Active Substance: METOPROLOL SUCCINATE
  12. L-ARGININE [Concomitant]
     Active Substance: ARGININE

REACTIONS (4)
  - Visual impairment [None]
  - Abdominal pain [None]
  - Chest pain [None]
  - Fatigue [None]
